FAERS Safety Report 25078904 (Version 10)
Quarter: 2025Q4

REPORT INFORMATION
  Report Type: Report from Study
  Country: EU (occurrence: EU)
  Receive Date: 20250314
  Receipt Date: 20251216
  Transmission Date: 20260118
  Serious: Yes (Other)
  Sender: TRAVERE THERAPEUTICS
  Company Number: EU-BEH-2025198534

PATIENT
  Age: 40 Year
  Sex: Male
  Weight: 85 kg

DRUGS (8)
  1. FILSPARI [Suspect]
     Active Substance: SPARSENTAN
     Indication: IgA nephropathy
     Dosage: 200 MG
     Route: 065
     Dates: start: 20240528, end: 20240612
  2. FILSPARI [Suspect]
     Active Substance: SPARSENTAN
     Dosage: 200 MG
     Route: 065
     Dates: start: 20240528, end: 20240612
  3. FILSPARI [Suspect]
     Active Substance: SPARSENTAN
     Dosage: 400 MG, QD
     Route: 048
     Dates: start: 20240613, end: 20250402
  4. FILSPARI [Suspect]
     Active Substance: SPARSENTAN
     Dosage: 400 MG, QD
     Route: 048
     Dates: start: 20240613, end: 20250402
  5. DIAZEPAM [Concomitant]
     Active Substance: DIAZEPAM
  6. PITAVASTATIN [Concomitant]
     Active Substance: PITAVASTATIN
     Indication: Dyslipidaemia
     Dosage: 2 MG, QD
     Dates: start: 20240501, end: 20250129
  7. ALLOPURINOL [Concomitant]
     Active Substance: ALLOPURINOL
     Indication: Hyperuricaemia
     Dosage: 100 MG, QD
     Dates: start: 20241001, end: 20250416
  8. OMEGA-3 FATTY ACIDS [Concomitant]
     Active Substance: OMEGA-3 FATTY ACIDS
     Indication: Dyslipidaemia
     Dosage: 1 G, BID
     Dates: start: 20220907, end: 20240416

REACTIONS (4)
  - Liver function test abnormal [Recovered/Resolved]
  - Hepatotoxicity [Unknown]
  - Alanine aminotransferase increased [Recovered/Resolved]
  - Aspartate aminotransferase increased [Recovered/Resolved]

NARRATIVE: CASE EVENT DATE: 20250116
